FAERS Safety Report 20616295 (Version 1)
Quarter: 2022Q1

REPORT INFORMATION
  Report Type: Spontaneous
  Country: CN (occurrence: CN)
  Receive Date: 20220321
  Receipt Date: 20220321
  Transmission Date: 20220423
  Serious: Yes (Other)
  Sender: FDA-Public Use
  Company Number: CN-BAXTER-2022BAX006062

PATIENT
  Age: 44 Year
  Sex: Female
  Weight: 66.8 kg

DRUGS (5)
  1. CYCLOPHOSPHAMIDE [Suspect]
     Active Substance: CYCLOPHOSPHAMIDE
     Indication: Breast cancer female
     Dosage: ENDOXAN CTX (CYCLOPHOSPHAMIDE FOR INJECTION) (1050 MG) + SODIUM CHLORIDE (NS) (55ML)
     Route: 042
     Dates: start: 20220210, end: 20220210
  2. SODIUM CHLORIDE [Suspect]
     Active Substance: SODIUM CHLORIDE
     Indication: Medication dilution
     Dosage: ENDOXAN CTX (CYCLOPHOSPHAMIDE FOR INJECTION) (1050 MG) + SODIUM CHLORIDE (NS) (55ML)
     Route: 042
     Dates: start: 20220210, end: 20220210
  3. SODIUM CHLORIDE [Suspect]
     Active Substance: SODIUM CHLORIDE
     Dosage: PHARMORUBICIN (EPIRUBICIN HYDROCHLORIDE FOR INJECTION) (158 MG) + SODIUM CHLORIDE (NS) (100ML)
     Route: 041
     Dates: start: 20220210, end: 20220210
  4. EPIRUBICIN [Suspect]
     Active Substance: EPIRUBICIN
     Indication: Breast cancer female
     Dosage: PHARMORUBICIN (EPIRUBICIN HYDROCHLORIDE FOR INJECTION) (158 MG) + SODIUM CHLORIDE (NS) (100ML)
     Route: 041
     Dates: start: 20220210, end: 20220210
  5. Aiduo [Concomitant]
     Indication: Product used for unknown indication
     Route: 058
     Dates: start: 202202

REACTIONS (2)
  - White blood cell count decreased [Recovered/Resolved]
  - Agranulocytosis [Recovered/Resolved]

NARRATIVE: CASE EVENT DATE: 20220217
